FAERS Safety Report 18086332 (Version 1)
Quarter: 2020Q3

REPORT INFORMATION
  Report Type: Spontaneous
  Country: US (occurrence: US)
  Receive Date: 20200728
  Receipt Date: 20200728
  Transmission Date: 20201103
  Serious: Yes (Other)
  Sender: FDA-Public Use
  Company Number: US-PURDUE-USA-2020-0159101

PATIENT
  Sex: Female

DRUGS (3)
  1. DILAUDID [Suspect]
     Active Substance: HYDROMORPHONE HYDROCHLORIDE
     Indication: LIGAMENT SPRAIN
     Dosage: UNK
     Route: 048
     Dates: start: 2011
  2. WARFARIN [Concomitant]
     Active Substance: WARFARIN
     Indication: PRODUCT USED FOR UNKNOWN INDICATION
     Route: 065
  3. OXYCONTIN [Suspect]
     Active Substance: OXYCODONE HYDROCHLORIDE
     Indication: LIGAMENT SPRAIN
     Dosage: UNK
     Route: 048
     Dates: start: 2011

REACTIONS (3)
  - Dependence [Unknown]
  - Mitral valve incompetence [Unknown]
  - General physical health deterioration [Unknown]
